FAERS Safety Report 7602541-2 (Version None)
Quarter: 2011Q3

REPORT INFORMATION
  Report Type: 
  Country: None (occurrence: None)
  Receive Date: 20110707
  Receipt Date: 20110406
  Transmission Date: 20111222
  Serious: Yes (Hospitalization, Other)
  Sender: FDA-Public Use
  Company Number: US-CYPR-2010-000011

PATIENT
  Sex: Male
  Weight: 83.0083 kg

DRUGS (5)
  1. ASPIRIN [Suspect]
     Indication: THROMBOSIS PROPHYLAXIS
     Dosage: 81 MG QD ORAL
     Route: 048
     Dates: start: 20090829
  2. CYPHER STENT [Concomitant]
  3. CLOPIDOGREL [Suspect]
     Indication: ANTIPLATELET THERAPY
     Dosage: 75 MG QD ORAL
     Route: 048
     Dates: start: 20100827, end: 20101207
  4. METOPROLOL TARTRATE [Concomitant]
  5. ZESTRIL [Concomitant]

REACTIONS (1)
  - ANGINA PECTORIS [None]
